FAERS Safety Report 9144220 (Version 1)
Quarter: 2013Q1

REPORT INFORMATION
  Report Type: Spontaneous
  Country: JP (occurrence: JP)
  Receive Date: 20130306
  Receipt Date: 20130306
  Transmission Date: 20140127
  Serious: Yes (Other)
  Sender: FDA-Public Use
  Company Number: JP-ROCHE-1196452

PATIENT
  Sex: Female

DRUGS (7)
  1. DORMICUM [Suspect]
     Indication: PRODUCT USED FOR UNKNOWN INDICATION
     Route: 065
     Dates: start: 201008, end: 201008
  2. CLONAZEPAM [Suspect]
     Indication: MYOCLONUS
     Route: 048
     Dates: start: 201008
  3. FENTANYL [Suspect]
     Indication: PRODUCT USED FOR UNKNOWN INDICATION
     Route: 048
     Dates: start: 201008, end: 201008
  4. VECURONIUM [Concomitant]
     Route: 065
     Dates: start: 201008
  5. GLYCEOL [Concomitant]
     Indication: PROPHYLAXIS
     Route: 065
     Dates: start: 201008
  6. PROPRANOLOL [Concomitant]
     Indication: PROPHYLAXIS
     Route: 048
     Dates: start: 201008
  7. AMIODARONE [Concomitant]
     Indication: PROPHYLAXIS
     Route: 048
     Dates: start: 201008, end: 201008

REACTIONS (1)
  - Electroencephalogram abnormal [Unknown]
